FAERS Safety Report 6740799-2 (Version None)
Quarter: 2010Q2

REPORT INFORMATION
  Report Type: 
  Country: None (occurrence: None)
  Receive Date: 20100525
  Receipt Date: 20100525
  Transmission Date: 20101027
  Serious: Yes (Hospitalization)
  Sender: FDA-Public Use
  Company Number: None

PATIENT
  Sex: Male
  Weight: 101.2 kg

DRUGS (2)
  1. CISPLATIN [Suspect]
     Dosage: 330 MG
     Dates: end: 20100427
  2. TAXOL [Suspect]
     Dosage: 660 MG
     Dates: end: 20100427

REACTIONS (2)
  - CHEST PAIN [None]
  - RADIATION OESOPHAGITIS [None]
